FAERS Safety Report 7659814-7 (Version None)
Quarter: 2011Q3

REPORT INFORMATION
  Report Type: 
  Country: None (occurrence: None)
  Receive Date: 20110805
  Receipt Date: 20110726
  Transmission Date: 20111222
  Serious: Yes (Other)
  Sender: FDA-Public Use
  Company Number: JP-PFIZER INC-2011154495

PATIENT
  Age: 73 Year
  Sex: Female

DRUGS (5)
  1. OLMESARTAN MEDOXOMIL [Concomitant]
     Dosage: UNK
  2. ISOSORBIDE DINITRATE [Concomitant]
     Dosage: UNK
  3. ALOSENN [Concomitant]
     Dosage: UNK
  4. LIPITOR [Suspect]
     Indication: HYPERCHOLESTEROLAEMIA
     Dosage: 10 MG, 1X/DAY
     Route: 048
     Dates: start: 20110401, end: 20110625
  5. MAGMITT [Concomitant]
     Dosage: UNK

REACTIONS (1)
  - LIVER DISORDER [None]
